FAERS Safety Report 7520023-3 (Version None)
Quarter: 2011Q2

REPORT INFORMATION
  Report Type: 
  Country: None (occurrence: None)
  Receive Date: 20110602
  Receipt Date: 20110520
  Transmission Date: 20111010
  Serious: Yes (Other)
  Sender: FDA-Public Use
  Company Number: PHHY2009CA49578

PATIENT
  Sex: Female

DRUGS (3)
  1. CHEMOTHERAPEUTICS NOS [Concomitant]
  2. SANDOSTATIN LAR [Suspect]
     Indication: CARCINOID TUMOUR
     Dosage: 30 MG, EVERY 4 WEEKS
     Route: 030
     Dates: start: 20070725
  3. SANDOSTATIN LAR [Suspect]
     Dosage: 30 MG EVERY 2 WEEKS
     Route: 030

REACTIONS (9)
  - INFLUENZA LIKE ILLNESS [None]
  - TOOTH DISORDER [None]
  - BRONCHITIS [None]
  - HEPATIC LESION [None]
  - BLOOD PRESSURE SYSTOLIC INCREASED [None]
  - NEOPLASM MALIGNANT [None]
  - FEELING ABNORMAL [None]
  - ASTHENIA [None]
  - ALOPECIA [None]
